FAERS Safety Report 10175922 (Version 2)
Quarter: 2014Q2

REPORT INFORMATION
  Report Type: Spontaneous
  Country: JP (occurrence: JP)
  Receive Date: 20140516
  Receipt Date: 20140605
  Transmission Date: 20141212
  Serious: Yes (Other)
  Sender: FDA-Public Use
  Company Number: JP-ELI_LILLY_AND_COMPANY-JP201405002569

PATIENT
  Age: 80 Year
  Sex: Female
  Weight: 59.8 kg

DRUGS (8)
  1. CYMBALTA [Suspect]
     Indication: DEPRESSION
     Dosage: 20 MG, QD
     Dates: start: 20140325, end: 20140420
  2. CYMBALTA [Suspect]
     Dosage: 30 MG, QD
     Dates: start: 20140421, end: 20140508
  3. CANDESARTAN CILEXETIL W/HYDROCHLOROTHIAZIDE [Concomitant]
     Indication: HYPERTENSION
     Dosage: 1 DF, QD
     Route: 048
  4. ZETIA [Concomitant]
     Indication: HYPERLIPIDAEMIA
     Dosage: 10 MG, QD
     Route: 048
  5. BAYASPIRIN [Concomitant]
     Indication: CEREBRAL INFARCTION
     Dosage: 100 MG, QD
     Route: 048
  6. JANUVIA [Concomitant]
     Indication: DIABETES MELLITUS
     Dosage: 50 MG, QD
     Route: 048
  7. AMOBAN [Concomitant]
     Indication: INITIAL INSOMNIA
     Dosage: 10 MG, QD
     Route: 048
  8. AMITIZA [Concomitant]
     Indication: CONSTIPATION
     Dosage: UNK
     Route: 048

REACTIONS (2)
  - Neutrophil count decreased [Recovered/Resolved]
  - White blood cell count decreased [Recovered/Resolved]
